FAERS Safety Report 15578575 (Version 1)
Quarter: 2018Q4

REPORT INFORMATION
  Report Type: Spontaneous
  Country: CZ (occurrence: CZ)
  Receive Date: 20181102
  Receipt Date: 20181102
  Transmission Date: 20190205
  Serious: Yes (Hospitalization, Other)
  Sender: FDA-Public Use
  Company Number: CZ-INGENUS PHARMACEUTICALS NJ, LLC-ING201810-001030

PATIENT
  Age: 82 Year
  Sex: Male

DRUGS (5)
  1. BISOPROLOL [Concomitant]
     Active Substance: BISOPROLOL
  2. CARISOPRODOL, ASPIRIN AND CODEINE PHOSPHATE [Suspect]
     Active Substance: ASPIRIN\CARISOPRODOL\CODEINE PHOSPHATE
  3. CLOPIDOGREL [Suspect]
     Active Substance: CLOPIDOGREL BISULFATE
  4. PERINDOPRIL [Concomitant]
     Active Substance: PERINDOPRIL
  5. ATORVASTATIN [Concomitant]
     Active Substance: ATORVASTATIN

REACTIONS (13)
  - Haematoma [Unknown]
  - Metabolic acidosis [Unknown]
  - Haematuria [Unknown]
  - Fluid overload [Unknown]
  - Overdose [Unknown]
  - Nephropathy [Not Recovered/Not Resolved]
  - Epistaxis [Unknown]
  - Decreased appetite [Unknown]
  - Hyperkalaemia [Unknown]
  - Fatigue [Unknown]
  - Dyspnoea [Unknown]
  - Renal tubular necrosis [Not Recovered/Not Resolved]
  - Renal failure [Not Recovered/Not Resolved]
